FAERS Safety Report 5931094-X (Version None)
Quarter: 2008Q4

REPORT INFORMATION
  Report Type: 
  Country: None (occurrence: None)
  Receive Date: 20081022
  Receipt Date: 20081014
  Transmission Date: 20090506
  Serious: Yes (Death)
  Sender: FDA-Public Use
  Company Number: ADE2008-0347

PATIENT
  Age: 94 Year
  Sex: Female
  Weight: 45 kg

DRUGS (17)
  1. SIMVASTATIN [Suspect]
     Indication: TRANSIENT ISCHAEMIC ATTACK
     Dates: start: 20071204, end: 20071211
  2. AMIODARONE HCL [Concomitant]
  3. BECLOMETHASONE DIPROPIONATE [Concomitant]
  4. BENDROFLUMETHIAZIDE [Concomitant]
  5. BISOPROLOL FUMARATE [Concomitant]
  6. CALCIUM GLUCONATE [Concomitant]
  7. CARBOMER [Concomitant]
  8. ACETAMINOPHEN W/ CODEINE [Concomitant]
  9. DIGOXIN [Concomitant]
  10. FERROUS SULFATE TAB [Concomitant]
  11. IPRATROPIUM BROMIDE [Concomitant]
  12. MOVICOL [Concomitant]
  13. OMEPRAZOLE [Concomitant]
  14. RAMIPRIL [Concomitant]
  15. ALBUTEROL SULFATE [Concomitant]
  16. SERETIDE [Concomitant]
  17. WARFARIN SODIUM [Concomitant]

REACTIONS (6)
  - ALANINE AMINOTRANSFERASE INCREASED [None]
  - ATRIAL FIBRILLATION [None]
  - BLOOD ALBUMIN DECREASED [None]
  - HEPATIC FAILURE [None]
  - INTERNATIONAL NORMALISED RATIO INCREASED [None]
  - PNEUMONIA [None]
